FAERS Safety Report 9366837 (Version 2)
Quarter: 2013Q3

REPORT INFORMATION
  Report Type: Spontaneous
  Country: US (occurrence: US)
  Receive Date: 20130625
  Receipt Date: 20130903
  Transmission Date: 20140515
  Serious: Yes (Other)
  Sender: FDA-Public Use
  Company Number: US-PAR PHARMACEUTICAL, INC-2013SCPR005994

PATIENT
  Sex: 0

DRUGS (1)
  1. METOCLOPRAMIDE [Suspect]
     Indication: PRODUCT USED FOR UNKNOWN INDICATION
     Dosage: 2 DF, 1 HOUR AC AND HS
     Route: 048
     Dates: start: 20070410

REACTIONS (4)
  - Parkinsonian gait [Unknown]
  - Tardive dyskinesia [Unknown]
  - Tremor [Unknown]
  - Tremor [Unknown]
